FAERS Safety Report 9731555 (Version 1)
Quarter: 2013Q4

REPORT INFORMATION
  Report Type: Spontaneous
  Country: US (occurrence: None)
  Receive Date: 20131204
  Receipt Date: 20131204
  Transmission Date: 20140711
  Serious: No
  Sender: FDA-Public Use
  Company Number: None

PATIENT
  Age: 28 Year
  Sex: Male

DRUGS (1)
  1. CYMBALTA 30MG [Suspect]
     Dosage: 2 PILLS; ONCE DAILY
     Route: 048

REACTIONS (4)
  - Paraesthesia [None]
  - Impaired work ability [None]
  - Impaired driving ability [None]
  - Activities of daily living impaired [None]
